FAERS Safety Report 22023581 (Version 2)
Quarter: 2023Q1

REPORT INFORMATION
  Report Type: Spontaneous
  Country: US (occurrence: US)
  Receive Date: 20230223
  Receipt Date: 20230303
  Transmission Date: 20230418
  Serious: No
  Sender: FDA-Public Use
  Company Number: US-JNJFOC-20230242142

PATIENT
  Sex: Male
  Weight: 102.60 kg

DRUGS (5)
  1. TREMFYA [Suspect]
     Active Substance: GUSELKUMAB
     Indication: Psoriasis
     Route: 058
     Dates: start: 20230202
  2. TREMFYA [Suspect]
     Active Substance: GUSELKUMAB
     Indication: Psoriatic arthropathy
  3. ALBUTEROL [Concomitant]
     Active Substance: ALBUTEROL
  4. FEBUXOSTAT [Concomitant]
     Active Substance: FEBUXOSTAT
  5. TRIAMCINOLONE [Concomitant]
     Active Substance: TRIAMCINOLONE

REACTIONS (2)
  - Device malfunction [Unknown]
  - Product dose omission issue [Unknown]
